FAERS Safety Report 8190379-X (Version None)
Quarter: 2012Q1

REPORT INFORMATION
  Report Type: 
  Country: None (occurrence: None)
  Receive Date: 20120307
  Receipt Date: 20120227
  Transmission Date: 20120608
  Serious: Yes (Death, Hospitalization, Other)
  Sender: FDA-Public Use
  Company Number: JP-AMGEN-JPNCT2010009643

PATIENT
  Age: 62 Year
  Sex: Male
  Weight: 57 kg

DRUGS (21)
  1. PANITUMUMAB [Suspect]
     Indication: COLORECTAL CANCER
     Dosage: 5.3 MG/KG, Q2WK
     Route: 041
     Dates: start: 20100729, end: 20100729
  2. PANITUMUMAB [Suspect]
     Dosage: 5.3 MG/KG, Q2WK
     Route: 041
     Dates: start: 20101222
  3. ANTIHISTAMINES [Concomitant]
     Indication: PROPHYLAXIS
     Dosage: UNK
     Route: 065
  4. DECADRON [Concomitant]
     Route: 042
  5. PROCHLORPERAZINE [Concomitant]
     Route: 048
  6. FLUOROURACIL [Suspect]
     Indication: COLORECTAL CANCER
     Route: 041
     Dates: start: 20100729
  7. LEVOLEUCOVORIN CALCIUM [Suspect]
     Indication: COLORECTAL CANCER
     Route: 041
     Dates: start: 20100729
  8. OXINORM [Concomitant]
     Route: 048
  9. ZOPICOOL [Concomitant]
     Dosage: UNK
     Route: 048
  10. PANITUMUMAB [Suspect]
     Dosage: 5.3 MG/KG, Q2WK
     Route: 041
     Dates: start: 20101111, end: 20101129
  11. CORTICOSTEROIDS [Concomitant]
     Indication: PROPHYLAXIS
     Dosage: UNK
     Route: 065
  12. KYTRIL [Concomitant]
     Route: 042
  13. VOLTAREN [Concomitant]
     Dosage: UNK
     Route: 048
  14. OXYCONTIN [Concomitant]
     Dosage: UNK
     Route: 048
  15. PANITUMUMAB [Suspect]
     Dosage: 5.3 MG/KG, Q2WK
     Route: 041
     Dates: start: 20100902, end: 20100916
  16. IRINOTECAN HCL [Suspect]
     Indication: COLORECTAL CANCER
     Route: 041
     Dates: start: 20100729
  17. LORFENAMIN [Concomitant]
     Dosage: UNK
     Route: 048
  18. RABEPRAZOLE SODIUM [Concomitant]
     Dosage: UNK
     Route: 048
  19. FENTANYL-100 [Concomitant]
     Route: 062
  20. PYDOXAL [Concomitant]
     Dosage: UNK
     Route: 048
  21. ZOLPIDEM [Concomitant]
     Dosage: UNK
     Route: 048

REACTIONS (12)
  - EYE DISCHARGE [None]
  - COLORECTAL CANCER [None]
  - DRY SKIN [None]
  - ANAEMIA [None]
  - KERATITIS [None]
  - HEPATIC FUNCTION ABNORMAL [None]
  - BLOOD MAGNESIUM DECREASED [None]
  - DERMATITIS ACNEIFORM [None]
  - DEHYDRATION [None]
  - ABDOMINAL ABSCESS [None]
  - BLOOD SODIUM INCREASED [None]
  - HYPOALBUMINAEMIA [None]
